FAERS Safety Report 4425960-4 (Version None)
Quarter: 2004Q3

REPORT INFORMATION
  Report Type: 
  Country: None (occurrence: None)
  Receive Date: 20040812
  Receipt Date: 20040802
  Transmission Date: 20050211
  Serious: Yes (Other)
  Sender: FDA-Public Use
  Company Number: 04-00423

PATIENT

DRUGS (1)
  1. CARBAMAZEPINE TABLETS USP (PUREPAC) [Suspect]
     Indication: EPILEPSY

REACTIONS (1)
  - CONVULSION [None]
